FAERS Safety Report 20821751 (Version 1)
Quarter: 2022Q2

REPORT INFORMATION
  Report Type: Report from Study
  Country: US (occurrence: US)
  Receive Date: 20220512
  Receipt Date: 20220512
  Transmission Date: 20220721
  Serious: Yes (Hospitalization, Other)
  Sender: FDA-Public Use
  Company Number: US-PFIZER INC-202200292830

PATIENT
  Age: 41 Year
  Sex: Female

DRUGS (2)
  1. IBRANCE [Suspect]
     Active Substance: PALBOCICLIB
     Indication: Breast cancer female
     Dosage: 125 MG, CYCLIC (DAILY FOR 21 DAYS AND OFF 7 DAYS)
     Route: 048
     Dates: start: 20220207
  2. FASLODEX [Concomitant]
     Active Substance: FULVESTRANT
     Dosage: UNK

REACTIONS (9)
  - Pulmonary oedema [Unknown]
  - Fungal infection [Unknown]
  - Decreased appetite [Unknown]
  - Dysgeusia [Unknown]
  - Gait disturbance [Recovering/Resolving]
  - Loss of personal independence in daily activities [Unknown]
  - Asthenia [Unknown]
  - Oropharyngeal pain [Unknown]
  - Dysphagia [Unknown]

NARRATIVE: CASE EVENT DATE: 20220101
